FAERS Safety Report 9091481 (Version 1)
Quarter: 2013Q1

REPORT INFORMATION
  Report Type: Spontaneous
  Country: US (occurrence: US)
  Receive Date: 20130219
  Receipt Date: 20130219
  Transmission Date: 20140127
  Serious: No
  Sender: FDA-Public Use
  Company Number: US-009507513-1302USA007176

PATIENT
  Age: 68 Year
  Sex: Female

DRUGS (4)
  1. SINGULAIR [Suspect]
     Indication: ASTHMA
     Dosage: 10 MG, UNK
     Route: 048
     Dates: start: 201301
  2. SINGULAIR [Suspect]
     Indication: COUGH
  3. Z-PAK [Concomitant]
  4. PREDNISONE [Concomitant]

REACTIONS (2)
  - Blood thyroid stimulating hormone increased [Not Recovered/Not Resolved]
  - Tri-iodothyronine decreased [Not Recovered/Not Resolved]
